FAERS Safety Report 15414770 (Version 1)
Quarter: 2018Q3

REPORT INFORMATION
  Report Type: Spontaneous
  Country: FR (occurrence: FR)
  Receive Date: 20180921
  Receipt Date: 20180921
  Transmission Date: 20181010
  Serious: Yes (Hospitalization, Other)
  Sender: FDA-Public Use
  Company Number: FR-NAPPMUNDI-GBR-2018-0059497

PATIENT
  Age: 86 Year
  Sex: Female

DRUGS (1)
  1. MORPHINE SULFATE. [Suspect]
     Active Substance: MORPHINE SULFATE
     Indication: PRODUCT USED FOR UNKNOWN INDICATION
     Dosage: UNK
     Route: 065

REACTIONS (8)
  - Abdominal pain [Unknown]
  - Constipation [Unknown]
  - Purple urine bag syndrome [Recovered/Resolved]
  - Urea urine abnormal [Recovered/Resolved]
  - Leukocyturia [Recovered/Resolved]
  - Weight decreased [Unknown]
  - Asthenia [Unknown]
  - Pyrexia [Unknown]
